FAERS Safety Report 15084237 (Version 1)
Quarter: 2018Q2

REPORT INFORMATION
  Report Type: Spontaneous
  Country: CA (occurrence: CA)
  Receive Date: 20180628
  Receipt Date: 20180628
  Transmission Date: 20180711
  Serious: Yes (Life-Threatening)
  Sender: FDA-Public Use
  Company Number: CA-TEVA-2018-CA-916528

PATIENT
  Age: 38 Year
  Sex: Female
  Weight: 63.56 kg

DRUGS (3)
  1. TRIMETHOPRIM-SULFAMETHOXAZOLE DS [Suspect]
     Active Substance: SULFAMETHOXAZOLE\TRIMETHOPRIM
     Indication: MYCOBACTERIUM FORTUITUM INFECTION
     Route: 048
  2. TRIMETHOPRIM-SULFAMETHOXAZOLE DS [Suspect]
     Active Substance: SULFAMETHOXAZOLE\TRIMETHOPRIM
     Indication: ABDOMINAL WALL ABSCESS
  3. LEVOFLOXACIN. [Concomitant]
     Active Substance: LEVOFLOXACIN

REACTIONS (5)
  - Decreased appetite [Recovered/Resolved]
  - Rash [Recovered/Resolved]
  - Transaminases increased [Recovered/Resolved]
  - Lethargy [Recovered/Resolved]
  - Leukopenia [Recovered/Resolved]
